FAERS Safety Report 5425628-1 (Version None)
Quarter: 2007Q3

REPORT INFORMATION
  Report Type: 
  Country: None (occurrence: None)
  Receive Date: 20070824
  Receipt Date: 20070813
  Transmission Date: 20080115
  Serious: Yes (Other)
  Sender: FDA-Public Use
  Company Number: US-PFIZER INC-2007067399

PATIENT
  Age: 54 Year
  Sex: Male

DRUGS (4)
  1. AMLODIPINE [Suspect]
     Indication: HYPERTENSION
  2. SPIRONOLACTONE [Suspect]
     Indication: FLUID RETENTION
  3. LISINOPRIL [Suspect]
     Indication: HYPERTENSION
  4. FUROSEMIDE [Suspect]
     Indication: FLUID RETENTION

REACTIONS (1)
  - HYPOTENSION [None]
